FAERS Safety Report 7884209-0 (Version None)
Quarter: 2011Q4

REPORT INFORMATION
  Report Type: 
  Country: None (occurrence: None)
  Receive Date: 20111102
  Receipt Date: 20111027
  Transmission Date: 20120403
  Serious: Yes (Other)
  Sender: FDA-Public Use
  Company Number: US-ROXANE LABORATORIES, INC.-2011-RO-01551RO

PATIENT
  Age: 46 Year
  Sex: Male

DRUGS (2)
  1. MYCOPHENOLATE MOFETIL [Suspect]
     Indication: GLOMERULONEPHRITIS
  2. PREDNISONE [Suspect]
     Indication: GLOMERULONEPHRITIS

REACTIONS (1)
  - CHORIORETINOPATHY [None]
